FAERS Safety Report 6141386-X (Version None)
Quarter: 2009Q2

REPORT INFORMATION
  Report Type: 
  Country: None (occurrence: None)
  Receive Date: 20090402
  Receipt Date: 20090325
  Transmission Date: 20091009
  Serious: Yes (Hospitalization, Other)
  Sender: FDA-Public Use
  Company Number: US-ROCHE-623911

PATIENT
  Sex: Female

DRUGS (1)
  1. CAPECITABINE [Suspect]
     Dosage: DOSE: 1000 MG AT AM AND 1000 MG AT PM
     Route: 048
     Dates: start: 20090220

REACTIONS (2)
  - CENTRAL NERVOUS SYSTEM LESION [None]
  - HOSPITALISATION [None]
